FAERS Safety Report 7531563-5 (Version None)
Quarter: 2011Q2

REPORT INFORMATION
  Report Type: 
  Country: None (occurrence: None)
  Receive Date: 20110608
  Receipt Date: 20110530
  Transmission Date: 20111010
  Serious: Yes (Hospitalization, Other)
  Sender: FDA-Public Use
  Company Number: BR-ASTRAZENECA-2011SE33369

PATIENT
  Age: 56 Year
  Sex: Male
  Weight: 86 kg

DRUGS (7)
  1. CRESTOR [Suspect]
     Route: 048
  2. METOPROLOL SUCCINATE [Concomitant]
  3. CRESTOR [Suspect]
     Indication: HYPERCHOLESTEROLAEMIA
     Route: 048
     Dates: start: 20100801
  4. VASTAREL [Concomitant]
  5. SOMALGIN CARDIO [Concomitant]
  6. LISINOPRIL [Concomitant]
     Indication: HYPERTENSION
     Route: 048
     Dates: start: 19910101
  7. CLOPIDOGREL [Concomitant]

REACTIONS (6)
  - ACUTE MYOCARDIAL INFARCTION [None]
  - CORONARY ARTERY OCCLUSION [None]
  - CATHETERISATION CARDIAC [None]
  - CORONARY ANGIOPLASTY [None]
  - STENT EMBOLISATION [None]
  - CORONARY ARTERIAL STENT INSERTION [None]
